FAERS Safety Report 4674397-1 (Version None)
Quarter: 2005Q2

REPORT INFORMATION
  Report Type: 
  Country: None (occurrence: None)
  Receive Date: 20050526
  Receipt Date: 20041021
  Transmission Date: 20051028
  Serious: Yes (Other)
  Sender: FDA-Public Use
  Company Number: PHBS2004BR13971

PATIENT
  Age: 46 Year
  Sex: Female

DRUGS (8)
  1. AREDIA [Suspect]
     Indication: BREAST CANCER STAGE IV
     Dosage: 90 MG, QMO
     Route: 042
     Dates: start: 19991101, end: 20020901
  2. CHEMOTHERAPEUTICS,OTHER [Concomitant]
     Route: 065
  3. CORTICOSTEROIDS [Concomitant]
     Route: 065
  4. DECADRON [Concomitant]
     Route: 065
  5. TAXOTERE [Concomitant]
     Dosage: 45 MG, TIW
     Route: 065
     Dates: start: 20040810, end: 20050218
  6. TAMOXIFEN [Concomitant]
     Route: 065
  7. RADIATION THERAPY [Concomitant]
     Dosage: 3000 CGY (15 X 200)
     Route: 065
     Dates: start: 20030929, end: 20031020
  8. ZOMETA [Suspect]
     Dosage: 4 MG, QMO
     Route: 042
     Dates: start: 20000501

REACTIONS (4)
  - ASEPTIC NECROSIS BONE [None]
  - BONE TRIMMING [None]
  - PROSTHESIS USER [None]
  - TOOTH EXTRACTION [None]
